FAERS Safety Report 10037109 (Version 1)
Quarter: 2014Q1

REPORT INFORMATION
  Report Type: Spontaneous
  Country: US (occurrence: None)
  Receive Date: 20140324
  Receipt Date: 20140324
  Transmission Date: 20141002
  Serious: Yes (Other)
  Sender: FDA-Public Use
  Company Number: SYM-2014-18471

PATIENT
  Sex: Female

DRUGS (1)
  1. XENAZINE [Suspect]
     Indication: TOURETTE^S DISORDER
     Dosage: 25MG, 2 IN 1 D, ORAL
     Route: 048
     Dates: start: 201203

REACTIONS (5)
  - Depression [None]
  - Migraine [None]
  - Suicidal ideation [None]
  - Nausea [None]
  - Vomiting [None]
